FAERS Safety Report 10037094 (Version 1)
Quarter: 2014Q1

REPORT INFORMATION
  Report Type: Spontaneous
  Country: US (occurrence: None)
  Receive Date: 20140325
  Receipt Date: 20140325
  Transmission Date: 20141002
  Serious: Yes (Disabling)
  Sender: FDA-Public Use
  Company Number: None

PATIENT
  Age: 40 Year
  Sex: Male
  Weight: 81.65 kg

DRUGS (1)
  1. SEROQUEL 300MG [Suspect]
     Indication: INSOMNIA
     Route: 048

REACTIONS (5)
  - Torticollis [None]
  - Impaired work ability [None]
  - Impaired driving ability [None]
  - Oromandibular dystonia [None]
  - Social problem [None]
